FAERS Safety Report 8860514 (Version 2)
Quarter: 2012Q4

REPORT INFORMATION
  Report Type: Report from Study
  Country: ES (occurrence: ES)
  Receive Date: 20121025
  Receipt Date: 20121112
  Transmission Date: 20130627
  Serious: Yes (Death, Hospitalization)
  Sender: FDA-Public Use
  Company Number: PHHO2012ES015254

PATIENT
  Age: 85 Year
  Sex: Male
  Weight: 87 kg

DRUGS (3)
  1. ICL670A [Suspect]
     Indication: HAEMOSIDEROSIS
     Dosage: 1000 mg, daily
     Route: 048
     Dates: start: 20120229
  2. ICL670A [Suspect]
     Indication: MYELODYSPLASTIC SYNDROME
  3. ENOXAPARIN [Concomitant]

REACTIONS (4)
  - Gastrointestinal haemorrhage [Fatal]
  - Loss of consciousness [Unknown]
  - Fall [Unknown]
  - Haemoglobin decreased [Unknown]
